FAERS Safety Report 7583402-4 (Version None)
Quarter: 2011Q2

REPORT INFORMATION
  Report Type: 
  Country: None (occurrence: None)
  Receive Date: 20110628
  Receipt Date: 20110628
  Transmission Date: 20111010
  Serious: Yes (Hospitalization)
  Sender: FDA-Public Use
  Company Number: None

PATIENT
  Age: 46 Year
  Sex: Female
  Weight: 110.9 kg

DRUGS (1)
  1. PIOGLITAZONE [Suspect]
     Dosage: 1 DAILY BY MOUTH
     Route: 048
     Dates: start: 20100719

REACTIONS (2)
  - PANCREATITIS CHRONIC [None]
  - ABDOMINAL PAIN [None]
